FAERS Safety Report 5843503-5 (Version None)
Quarter: 2008Q3

REPORT INFORMATION
  Report Type: 
  Country: None (occurrence: None)
  Receive Date: 20080813
  Receipt Date: 20080804
  Transmission Date: 20090109
  Serious: No
  Sender: FDA-Public Use
  Company Number: BR-EISAI MEDIAL RESEARCH-E3810-02062-SPO-BR

PATIENT
  Age: 81 Year
  Sex: Female

DRUGS (1)
  1. RABEPRAZOLE SODIUM [Suspect]
     Route: 048
     Dates: start: 20080701, end: 20080101

REACTIONS (1)
  - SOMNOLENCE [None]
